FAERS Safety Report 10066943 (Version 2)
Quarter: 2014Q2

REPORT INFORMATION
  Report Type: Report from Study
  Country: CA (occurrence: CA)
  Receive Date: 20140409
  Receipt Date: 20140415
  Transmission Date: 20141212
  Serious: Yes (Hospitalization)
  Sender: FDA-Public Use
  Company Number: PHHO2014CA004675

PATIENT
  Age: 48 Year
  Sex: Female
  Weight: 73.7 kg

DRUGS (7)
  1. FUROSEMIDE [Suspect]
     Indication: ASCITES
     Dosage: 40 MG, QD
     Route: 048
     Dates: start: 20140324, end: 20140327
  2. TACROLIMUS [Suspect]
     Indication: LIVER TRANSPLANT
     Dosage: 2.5 MG, BID
     Route: 048
     Dates: start: 20140313, end: 20140327
  3. TACROLIMUS [Suspect]
     Dosage: 1 MG, QD
     Route: 048
     Dates: start: 20140330
  4. TACROLIMUS [Suspect]
     Dosage: 3 MG, BID (AFTERNOON) INCREASED TO 5 MG BID (EVENING)
     Route: 048
     Dates: start: 20140404
  5. SEPTRA [Concomitant]
     Indication: PROPHYLAXIS
     Dosage: 1 DF, UNK (1 TABLET DAILY M, W, F SINGLE STRENGTH)
     Dates: start: 20140305, end: 20140326
  6. SEPTRA [Concomitant]
     Dosage: 1 DF, UNK (1 TABLET DAILY M, W, F SINGLE STRENGTH)
     Dates: start: 20140402
  7. CIPROFLOXACIN [Concomitant]
     Indication: SALMONELLOSIS
     Dosage: 750 MG, BID
     Route: 048
     Dates: start: 20140224, end: 20140327

REACTIONS (1)
  - Renal failure acute [Recovering/Resolving]
